FAERS Safety Report 18117937 (Version 1)
Quarter: 2020Q3

REPORT INFORMATION
  Report Type: Spontaneous
  Country: US (occurrence: US)
  Receive Date: 20200805
  Receipt Date: 20200805
  Transmission Date: 20201103
  Serious: Yes (Life-Threatening, Disabling, Other)
  Sender: FDA-Public Use
  Company Number: None

PATIENT
  Age: 66 Year
  Sex: Female
  Weight: 85.5 kg

DRUGS (6)
  1. LATANOPROST. [Concomitant]
     Active Substance: LATANOPROST
  2. MELATONIN [Concomitant]
     Active Substance: MELATONIN
  3. MULTI VITAMINMINERAL [Concomitant]
  4. CALCIUM WITH D3 [Concomitant]
  5. BLUMEN CLEAR ADVANCED HAND SANITIZER [Suspect]
     Active Substance: ALCOHOL
     Indication: COVID-19 PROPHYLAXIS
     Route: 061
     Dates: start: 20200525, end: 20200724
  6. VITAMIN C [Concomitant]
     Active Substance: ASCORBIC ACID

REACTIONS (27)
  - Vomiting [None]
  - Headache [None]
  - Confusional state [None]
  - Balance disorder [None]
  - Mobility decreased [None]
  - Cough [None]
  - Paraesthesia [None]
  - Chest pain [None]
  - Abdominal pain upper [None]
  - Disinfectant poisoning [None]
  - Dyspnoea [None]
  - Diarrhoea [None]
  - Wheezing [None]
  - Product quality issue [None]
  - Drooling [None]
  - Vision blurred [None]
  - Tremor [None]
  - Decreased appetite [None]
  - Gastrointestinal pain [None]
  - Chromaturia [None]
  - Cyanosis [None]
  - Tongue discolouration [None]
  - Nausea [None]
  - Dizziness [None]
  - SARS-CoV-2 test negative [None]
  - Recalled product administered [None]
  - Alcohol poisoning [None]

NARRATIVE: CASE EVENT DATE: 20200525
